FAERS Safety Report 4299097-1 (Version None)
Quarter: 2004Q1

REPORT INFORMATION
  Report Type: 
  Country: None (occurrence: None)
  Receive Date: 20040217
  Receipt Date: 20040203
  Transmission Date: 20041129
  Serious: Yes (Hospitalization)
  Sender: FDA-Public Use
  Company Number: 2004197446FR

PATIENT
  Age: 65 Year
  Sex: Female
  Weight: 48 kg

DRUGS (5)
  1. SOLU-MEDROL [Suspect]
     Indication: OSTEITIS DEFORMANS
     Dosage: 500 MG QD
     Dates: start: 19920109, end: 19920110
  2. SULFASALAZINE [Suspect]
     Indication: OSTEITIS DEFORMANS
  3. CYTOTEC [Suspect]
     Indication: OSTEITIS DEFORMANS
     Dosage: 200 UG,ORAL
     Route: 048
  4. PREDNISONE [Suspect]
     Indication: OSTEITIS DEFORMANS
     Dosage: 15 MG, QD
  5. AREDIA [Suspect]
     Indication: OSTEITIS DEFORMANS
     Dosage: 60 MG, SINGLE, IV
     Route: 042
     Dates: start: 19920101

REACTIONS (3)
  - BONE PAIN [None]
  - OSTEOMALACIA [None]
  - PATHOLOGICAL FRACTURE [None]
